FAERS Safety Report 21096950 (Version 3)
Quarter: 2022Q3

REPORT INFORMATION
  Report Type: Spontaneous
  Country: US (occurrence: US)
  Receive Date: 20220718
  Receipt Date: 20220914
  Transmission Date: 20221027
  Serious: Yes (Other)
  Sender: FDA-Public Use
  Company Number: US-AMGEN-USASP2022120672

PATIENT
  Age: 67 Year
  Sex: Male

DRUGS (4)
  1. ENBREL [Suspect]
     Active Substance: ETANERCEPT
     Indication: Psoriatic arthropathy
     Dosage: 50 MILLIGRAM, QWK
     Route: 058
     Dates: start: 2022
  2. ENBREL [Suspect]
     Active Substance: ETANERCEPT
     Indication: Dactylitis
  3. ENBREL [Suspect]
     Active Substance: ETANERCEPT
     Indication: Rheumatoid arthritis
  4. ENBREL [Suspect]
     Active Substance: ETANERCEPT
     Indication: Ankylosing spondylitis

REACTIONS (3)
  - Rheumatoid arthritis [Unknown]
  - Therapeutic product effect decreased [Unknown]
  - Device difficult to use [Unknown]

NARRATIVE: CASE EVENT DATE: 20220101
